FAERS Safety Report 5116515-7 (Version None)
Quarter: 2006Q3

REPORT INFORMATION
  Report Type: 
  Country: None (occurrence: None)
  Receive Date: 20060928
  Receipt Date: 20060918
  Transmission Date: 20061208
  Serious: Yes (Death, Life-Threatening, Hospitalization)
  Sender: FDA-Public Use
  Company Number: BG-JNJFOC-20060900673

PATIENT
  Sex: Male
  Weight: 67 kg

DRUGS (8)
  1. BLINDED; ABCIXIMA [Suspect]
     Indication: ACUTE MYOCARDIAL INFARCTION
     Route: 042
  2. RETEVASE [Suspect]
     Indication: ACUTE MYOCARDIAL INFARCTION
     Route: 042
  3. PLACEBO [Suspect]
     Indication: ACUTE MYOCARDIAL INFARCTION
     Route: 042
  4. ASPIRIN [Concomitant]
     Indication: ACUTE MYOCARDIAL INFARCTION
     Route: 048
  5. HEPARIN [Concomitant]
     Route: 042
  6. HEPARIN [Concomitant]
     Indication: ACUTE MYOCARDIAL INFARCTION
     Route: 042
  7. NITROGLYCERIN [Concomitant]
     Indication: ACUTE MYOCARDIAL INFARCTION
     Route: 042
  8. OMEPRAZOLE [Concomitant]
     Indication: PROPHYLAXIS AGAINST GASTROINTESTINAL ULCER

REACTIONS (1)
  - HAEMORRHAGIC STROKE [None]
